FAERS Safety Report 6068203-0 (Version None)
Quarter: 2009Q1

REPORT INFORMATION
  Report Type: 
  Country: None (occurrence: None)
  Receive Date: 20090206
  Receipt Date: 20090130
  Transmission Date: 20090719
  Serious: Yes (Hospitalization)
  Sender: FDA-Public Use
  Company Number: FR-ASTRAZENECA-2008CG01542

PATIENT
  Age: 941 Month
  Sex: Female
  Weight: 70 kg

DRUGS (6)
  1. CRESTOR [Suspect]
     Route: 048
     Dates: start: 20080404, end: 20080904
  2. LEVOTHYROX [Concomitant]
     Indication: HYPOTHYROIDISM
     Route: 048
  3. TAREG [Concomitant]
     Indication: HYPERTENSION
     Route: 048
  4. PIASCLEDINE [Concomitant]
  5. PARIET [Concomitant]
  6. PANFUREX [Concomitant]

REACTIONS (1)
  - HEPATITIS CHOLESTATIC [None]
